FAERS Safety Report 24254318 (Version 1)
Quarter: 2024Q3

REPORT INFORMATION
  Report Type: Spontaneous
  Country: US (occurrence: None)
  Receive Date: 20240826
  Receipt Date: 20240826
  Transmission Date: 20241016
  Serious: Yes (Other)
  Sender: Public
  Company Number: None

PATIENT
  Age: 72 Year
  Sex: Female

DRUGS (1)
  1. ENVARSUS XR [Suspect]
     Active Substance: TACROLIMUS
     Indication: Drug therapy
     Dosage: 1.5MG  EVERY MORNING  ?

REACTIONS (4)
  - Blood pressure increased [None]
  - Abdominal discomfort [None]
  - Skin laceration [None]
  - Laboratory test abnormal [None]
